FAERS Safety Report 16930962 (Version 2)
Quarter: 2019Q4

REPORT INFORMATION
  Report Type: Spontaneous
  Country: US (occurrence: US)
  Receive Date: 20191017
  Receipt Date: 20191025
  Transmission Date: 20200122
  Serious: Yes (Disabling, Congenital Anomaly, Other)
  Sender: FDA-Public Use
  Company Number: US-HIKMA PHARMACEUTICALS USA INC.-US-H14001-19-05341

PATIENT
  Age: 4 Month
  Sex: Male

DRUGS (1)
  1. METHOTREXATE. [Suspect]
     Active Substance: METHOTREXATE
     Indication: ABORTION INDUCED
     Route: 064

REACTIONS (14)
  - Hydrocephalus [Unknown]
  - Craniosynostosis [Unknown]
  - Adactyly [Unknown]
  - Microcephaly [Unknown]
  - Skull malformation [Unknown]
  - Arnold-Chiari malformation [Unknown]
  - Hypertelorism of orbit [Unknown]
  - Teratogenicity [Unknown]
  - Congenital foot malformation [Unknown]
  - Clinodactyly [Unknown]
  - Foetal exposure during pregnancy [Recovered/Resolved]
  - Strabismus [Unknown]
  - Feeding disorder [Unknown]
  - Off label use [Recovered/Resolved]
